FAERS Safety Report 18165580 (Version 3)
Quarter: 2020Q3

REPORT INFORMATION
  Report Type: Spontaneous
  Country: US (occurrence: US)
  Receive Date: 20200818
  Receipt Date: 20200917
  Transmission Date: 20201103
  Serious: No
  Sender: FDA-Public Use
  Company Number: US-SUPERNUS PHARMACEUTICALS, INC.-2020SUP00202

PATIENT
  Age: 28 Year
  Sex: Female
  Weight: 65.76 kg

DRUGS (6)
  1. TOPAMAX [Suspect]
     Active Substance: TOPIRAMATE
  2. TROKENDI XR [Suspect]
     Active Substance: TOPIRAMATE
     Dosage: 100 MG, 1X/DAY
     Route: 048
     Dates: end: 202001
  3. MULTIVITAMINS [Concomitant]
     Active Substance: VITAMINS
  4. TROKENDI XR [Suspect]
     Active Substance: TOPIRAMATE
     Dosage: 25 MG, 1X/DAY
     Route: 048
     Dates: start: 201912
  5. TROKENDI XR [Suspect]
     Active Substance: TOPIRAMATE
     Indication: MIGRAINE
     Dosage: 12.5 UNK
     Dates: start: 20191230
  6. TROKENDI XR [Suspect]
     Active Substance: TOPIRAMATE
     Dosage: 50 MG, 1X/DAY
     Route: 048

REACTIONS (12)
  - Gastritis [Recovered/Resolved]
  - Reflux gastritis [Recovered/Resolved]
  - Euphoric mood [Recovered/Resolved]
  - Speech disorder [Recovered/Resolved]
  - Gastric pH decreased [Recovered/Resolved]
  - Abdominal pain upper [Recovered/Resolved]
  - Dyspepsia [Recovered/Resolved]
  - Tinnitus [Unknown]
  - Mental impairment [Recovered/Resolved]
  - Memory impairment [Recovered/Resolved]
  - Photopsia [Not Recovered/Not Resolved]
  - Bradyphrenia [Recovered/Resolved]

NARRATIVE: CASE EVENT DATE: 201912
